FAERS Safety Report 10572991 (Version 1)
Quarter: 2014Q4

REPORT INFORMATION
  Report Type: Spontaneous
  Country: US (occurrence: None)
  Receive Date: 20141107
  Receipt Date: 20141107
  Transmission Date: 20150529
  Serious: Yes (Disabling)
  Sender: FDA-Public Use
  Company Number: None

PATIENT
  Age: 41 Year
  Sex: Male
  Weight: 122.47 kg

DRUGS (1)
  1. TESTOSTERONE. [Suspect]
     Active Substance: TESTOSTERONE
     Indication: BLOOD TESTOSTERONE DECREASED
     Route: 030
     Dates: start: 20041101, end: 20141105

REACTIONS (2)
  - Polycythaemia [None]
  - Blood viscosity increased [None]

NARRATIVE: CASE EVENT DATE: 20140501
